FAERS Safety Report 4517458-X (Version None)
Quarter: 2004Q4

REPORT INFORMATION
  Report Type: 
  Country: None (occurrence: None)
  Receive Date: 20041022
  Receipt Date: 20040729
  Transmission Date: 20050328
  Serious: Yes (Other)
  Sender: FDA-Public Use
  Company Number: 2004052230

PATIENT
  Age: 53 Year
  Sex: Male
  Weight: 77.1115 kg

DRUGS (3)
  1. RELPAX [Suspect]
     Indication: MIGRAINE
     Dosage: AS NEEDED (5 MG), ORAL
     Route: 048
     Dates: start: 20040701
  2. TYLENOL [Concomitant]
  3. ACETAMINOPHEN [Concomitant]

REACTIONS (4)
  - CONDITION AGGRAVATED [None]
  - HEART RATE INCREASED [None]
  - MIGRAINE [None]
  - SPONTANEOUS PENILE ERECTION [None]
